FAERS Safety Report 17283098 (Version 1)
Quarter: 2020Q1

REPORT INFORMATION
  Report Type: Spontaneous
  Country: US (occurrence: US)
  Receive Date: 20200117
  Receipt Date: 20200117
  Transmission Date: 20200409
  Serious: Yes (Other)
  Sender: FDA-Public Use
  Company Number: US-PFIZER INC-2020021000

PATIENT
  Age: 78 Year
  Sex: Female
  Weight: 46.71 kg

DRUGS (3)
  1. NEURONTIN [Suspect]
     Active Substance: GABAPENTIN
     Indication: PERINEAL PAIN
     Dosage: 300 MG, 3X/DAY
  2. NEURONTIN [Suspect]
     Active Substance: GABAPENTIN
     Indication: PELVIC PAIN
  3. NEURONTIN [Suspect]
     Active Substance: GABAPENTIN
     Indication: NEUROPATHY PERIPHERAL
     Dosage: 200 MG, 2X/DAY [2 CAPSULES]
     Route: 048

REACTIONS (4)
  - Drug intolerance [Recovering/Resolving]
  - Off label use [Unknown]
  - Dizziness [Recovering/Resolving]
  - Product use in unapproved indication [Unknown]
